FAERS Safety Report 21065833 (Version 2)
Quarter: 2022Q3

REPORT INFORMATION
  Report Type: Spontaneous
  Country: PL (occurrence: PL)
  Receive Date: 20220711
  Receipt Date: 20220801
  Transmission Date: 20221026
  Serious: Yes (Hospitalization, Other)
  Sender: FDA-Public Use
  Company Number: PL-TEVA-2022-PL-2047225

PATIENT
  Age: 19 Year
  Sex: Female

DRUGS (1)
  1. LEVETIRACETAM [Suspect]
     Active Substance: LEVETIRACETAM
     Dosage: UNK
     Dates: start: 202205, end: 2022

REACTIONS (4)
  - Urticaria [Recovered/Resolved]
  - Skin lesion [Recovering/Resolving]
  - Blister [Recovering/Resolving]
  - Angioedema [Unknown]

NARRATIVE: CASE EVENT DATE: 20220501
